FAERS Safety Report 7679711-0 (Version None)
Quarter: 2011Q3

REPORT INFORMATION
  Report Type: 
  Country: None (occurrence: None)
  Receive Date: 20110808
  Receipt Date: 20110729
  Transmission Date: 20111222
  Serious: Yes (Other)
  Sender: FDA-Public Use
  Company Number: 2011SP035933

PATIENT
  Age: 3 Year
  Sex: Male
  Weight: 15 kg

DRUGS (1)
  1. DESLORATADINE [Suspect]
     Indication: LARYNGITIS VIRAL
     Dosage: 2.5 ML; PO
     Route: 048
     Dates: start: 20110611, end: 20110611

REACTIONS (2)
  - FEAR [None]
  - HALLUCINATION [None]
